FAERS Safety Report 5959009-9 (Version None)
Quarter: 2008Q4

REPORT INFORMATION
  Report Type: 
  Country: None (occurrence: None)
  Receive Date: 20081113
  Receipt Date: 20071108
  Transmission Date: 20090506
  Serious: Yes (Other)
  Sender: FDA-Public Use
  Company Number: SPV1-2007-04903

PATIENT

DRUGS (1)
  1. AGRYLIN [Suspect]

REACTIONS (1)
  - CEREBROVASCULAR ACCIDENT [None]
